FAERS Safety Report 8196562-1 (Version None)
Quarter: 2012Q1

REPORT INFORMATION
  Report Type: 
  Country: None (occurrence: None)
  Receive Date: 20120307
  Receipt Date: 20120223
  Transmission Date: 20120608
  Serious: Yes (Disabling)
  Sender: FDA-Public Use
  Company Number: 2012P1008082

PATIENT
  Sex: Male

DRUGS (1)
  1. DEXEDRINE [Suspect]
     Indication: PRODUCT USED FOR UNKNOWN INDICATION

REACTIONS (3)
  - ANGER [None]
  - TREATMENT NONCOMPLIANCE [None]
  - DECREASED ACTIVITY [None]
